FAERS Safety Report 8668290 (Version 5)
Quarter: 2013Q1

REPORT INFORMATION
  Report Type: Report from Study
  Country: US (occurrence: US)
  Receive Date: 20120717
  Receipt Date: 20130109
  Transmission Date: 20140127
  Serious: Yes (Disabling, Other)
  Sender: FDA-Public Use
  Company Number: US-ROCHE-1085030

PATIENT
  Age: 52 Year
  Sex: Female
  Weight: 66.74 kg

DRUGS (2)
  1. TRASTUZUMAB [Suspect]
     Indication: BREAST CANCER METASTATIC
     Route: 042
     Dates: start: 201204
  2. TAXOL [Concomitant]
     Indication: BREAST CANCER
     Route: 042
     Dates: start: 20120420, end: 20120420

REACTIONS (22)
  - Blindness unilateral [Not Recovered/Not Resolved]
  - Nausea [Not Recovered/Not Resolved]
  - Neuropathy peripheral [Not Recovered/Not Resolved]
  - Abasia [Recovering/Resolving]
  - Pain [Recovering/Resolving]
  - Hypoaesthesia [Not Recovered/Not Resolved]
  - Headache [Recovered/Resolved]
  - Dizziness [Not Recovered/Not Resolved]
  - Lethargy [Recovering/Resolving]
  - Local swelling [Recovering/Resolving]
  - Weight increased [Recovering/Resolving]
  - Swelling [Recovered/Resolved]
  - Disorientation [Recovered/Resolved]
  - Asthenia [Recovering/Resolving]
  - Back pain [Recovering/Resolving]
  - Mucosal discolouration [Not Recovered/Not Resolved]
  - Tachycardia [Not Recovered/Not Resolved]
  - Chest pain [Not Recovered/Not Resolved]
  - Oral mucosal discolouration [Recovered/Resolved]
  - Feeling abnormal [Not Recovered/Not Resolved]
  - Dysstasia [Recovered/Resolved]
  - Blister [Not Recovered/Not Resolved]
